FAERS Safety Report 6229437-5 (Version None)
Quarter: 2009Q2

REPORT INFORMATION
  Report Type: 
  Country: None (occurrence: None)
  Receive Date: 20090615
  Receipt Date: 20090601
  Transmission Date: 20091009
  Serious: Yes (Death)
  Sender: FDA-Public Use
  Company Number: A0725421A

PATIENT
  Age: 61 Year
  Sex: Female
  Weight: 105.9 kg

DRUGS (3)
  1. AVANDIA [Suspect]
     Dosage: 4MG PER DAY
     Route: 065
     Dates: start: 20050401, end: 20060109
  2. HUMALOG [Concomitant]
     Dates: start: 20010101
  3. GLUCOPHAGE [Concomitant]
     Dates: start: 20010101

REACTIONS (2)
  - CARDIAC FAILURE CONGESTIVE [None]
  - MYOCARDIAL INFARCTION [None]
